FAERS Safety Report 12995568 (Version 1)
Quarter: 2016Q4

REPORT INFORMATION
  Report Type: Spontaneous
  Country: CA (occurrence: CA)
  Receive Date: 20161202
  Receipt Date: 20161202
  Transmission Date: 20170207
  Serious: Yes (Other)
  Sender: FDA-Public Use
  Company Number: CA-GLAXOSMITHKLINE-CA2016GSK177683

PATIENT
  Age: 29 Year
  Sex: Female
  Weight: 58 kg

DRUGS (3)
  1. IMITREX DF [Suspect]
     Active Substance: SUMATRIPTAN SUCCINATE
     Indication: PRODUCT USED FOR UNKNOWN INDICATION
     Dosage: 50 MG, SINGLE
     Route: 048
  2. OMEGA 3 SELECT [Concomitant]
  3. PREGVIT [Concomitant]

REACTIONS (6)
  - Paraesthesia [Recovered/Resolved]
  - Peripheral coldness [Recovered/Resolved]
  - Hypoaesthesia [Recovered/Resolved]
  - Nausea [Recovered/Resolved]
  - Dyspnoea [Recovered/Resolved]
  - Chest discomfort [Recovered/Resolved]
